FAERS Safety Report 4896686-8 (Version None)
Quarter: 2005Q4

REPORT INFORMATION
  Report Type: 
  Country: None (occurrence: None)
  Receive Date: 20051223
  Receipt Date: 20051116
  Transmission Date: 20060501
  Serious: No
  Sender: FDA-Public Use
  Company Number: 05P-163-0317383-00

PATIENT
  Age: 63 Year
  Sex: Female
  Weight: 81.6475 kg

DRUGS (25)
  1. HUMIRA [Suspect]
     Indication: RHEUMATOID ARTHRITIS
     Dosage: 40 MG, 1 IN 2 WK, SUBCUTANEOUS
     Route: 058
     Dates: start: 20051011
  2. NAPHCONA EYE DROPS [Concomitant]
  3. CALCIUM CITRATE [Concomitant]
  4. CITRACAL + D [Concomitant]
  5. CYMBALTA [Concomitant]
  6. METAXALONE [Concomitant]
  7. GABAPENTIN [Concomitant]
  8. PROVAGEL [Concomitant]
  9. MIRAPEX [Concomitant]
  10. FLUTICASONE PROPIONATE [Concomitant]
  11. ESOMEPRAZOLE [Concomitant]
  12. SALBUTAMOL [Concomitant]
  13. HYDROCHLOROTHIAZIDE [Concomitant]
  14. COUMADIN [Concomitant]
  15. VISICOL [Concomitant]
  16. ATORVASTATIN CALCIUM [Concomitant]
  17. ENALAPRIL MALEATE [Concomitant]
  18. METHOTREXATE [Concomitant]
  19. PREDNISONE [Concomitant]
  20. FOLIC ACID [Concomitant]
  21. GLYCERYL TRINITRATE [Concomitant]
  22. CETIRIZINE HYDROCHLORIDE [Concomitant]
  23. FIORICET W/ CODEINE [Concomitant]
  24. ESTRIC PLUS [Concomitant]
  25. LIDODERM LIDOCAINE [Concomitant]

REACTIONS (1)
  - RASH [None]
